FAERS Safety Report 4965066-9 (Version None)
Quarter: 2006Q2

REPORT INFORMATION
  Report Type: 
  Country: None (occurrence: None)
  Receive Date: 20060403
  Receipt Date: 20060328
  Transmission Date: 20061013
  Serious: Yes (Hospitalization)
  Sender: FDA-Public Use
  Company Number: 2005BI021956

PATIENT
  Age: 42 Year
  Sex: Male

DRUGS (1)
  1. AVONEX [Suspect]
     Indication: MULTIPLE SCLEROSIS
     Dosage: 30 UG; QW; IM
     Route: 030
     Dates: start: 20050307

REACTIONS (6)
  - ATRIAL FIBRILLATION [None]
  - BLOOD LACTATE DEHYDROGENASE DECREASED [None]
  - HYPERTENSION [None]
  - PALPITATIONS [None]
  - TACHYARRHYTHMIA [None]
  - TACHYCARDIA [None]
